FAERS Safety Report 4519774-4 (Version None)
Quarter: 2004Q4

REPORT INFORMATION
  Report Type: 
  Country: None (occurrence: None)
  Receive Date: 20041203
  Receipt Date: 20041203
  Transmission Date: 20050328
  Serious: Yes (Life-Threatening, Hospitalization)
  Sender: FDA-Public Use
  Company Number: None

PATIENT
  Age: 57 Year
  Sex: Female
  Weight: 93.9 kg

DRUGS (4)
  1. WARFARIN  5 MG AND 7.5 MG [Suspect]
     Indication: DEEP VEIN THROMBOSIS
     Dosage: 5/7.5 MG DAILY ORAL
     Route: 048
  2. GLUCOSAMINE CHONDROITIN [Suspect]
     Indication: OSTEOARTHRITIS
     Dosage: 6 TABLETS DAILY ORAL
     Route: 048
  3. ZOCOR [Concomitant]
  4. LOSARTAN [Concomitant]

REACTIONS (2)
  - DRUG INTERACTION [None]
  - INTRAVENTRICULAR HAEMORRHAGE [None]
